FAERS Safety Report 18573897 (Version 5)
Quarter: 2022Q2

REPORT INFORMATION
  Report Type: Spontaneous
  Country: SA (occurrence: SA)
  Receive Date: 20201203
  Receipt Date: 20220408
  Transmission Date: 20220721
  Serious: Yes (Death, Hospitalization)
  Sender: FDA-Public Use
  Company Number: SA-BIOGEN-2020BI00951178

PATIENT
  Sex: Male
  Weight: 6 kg

DRUGS (5)
  1. SPINRAZA [Suspect]
     Active Substance: NUSINERSEN
     Indication: Spinal muscular atrophy
     Dosage: 4 LOADING DOSES (1:15:29:64) THEN 1 MAINTENANCE DOSE EVERY 4 MONTH
     Route: 065
     Dates: start: 20191219, end: 20191219
  2. SPINRAZA [Suspect]
     Active Substance: NUSINERSEN
     Dosage: THREE LOADING DOSES
     Route: 065
     Dates: start: 20200109, end: 20200109
  3. SPINRAZA [Suspect]
     Active Substance: NUSINERSEN
     Dosage: THREE LOADING DOSES
     Route: 065
     Dates: start: 20200123, end: 20200123
  4. SPINRAZA [Suspect]
     Active Substance: NUSINERSEN
     Dosage: 4 LOADING DOSES (1:15:29:64) THEN 1 MAINTENANCE DOSE EVERY 4 MONTH
     Route: 037
  5. SPINRAZA [Suspect]
     Active Substance: NUSINERSEN
     Dosage: (0, 14, 28, 63) THEN 1 MAINTENANCE DOSE EVERY 4 MONTHS
     Route: 037

REACTIONS (4)
  - Respiratory failure [Fatal]
  - Pneumonia [Fatal]
  - Respiratory tract infection [Not Recovered/Not Resolved]
  - Hypotonia [Not Recovered/Not Resolved]

NARRATIVE: CASE EVENT DATE: 20200101
